FAERS Safety Report 23365845 (Version 2)
Quarter: 2024Q1

REPORT INFORMATION
  Report Type: Spontaneous
  Country: JP (occurrence: JP)
  Receive Date: 20240104
  Receipt Date: 20240119
  Transmission Date: 20240410
  Serious: Yes (Hospitalization)
  Sender: FDA-Public Use
  Company Number: JP-Eisai-202312022_LEN_P_1

PATIENT
  Sex: Female

DRUGS (3)
  1. LENVIMA [Suspect]
     Active Substance: LENVATINIB
     Indication: Papillary thyroid cancer
     Dosage: ON A 2-WEEK-ON AND ONE-WEEK-OFF SCHEDULE
     Route: 048
     Dates: start: 202309, end: 202311
  2. LENVIMA [Suspect]
     Active Substance: LENVATINIB
     Dosage: ON A 2-WEEK-ON AND ONE-WEEK-OFF SCHEDULE
     Route: 048
     Dates: start: 202311, end: 202311
  3. LENVIMA [Suspect]
     Active Substance: LENVATINIB
     Route: 048
     Dates: start: 20240108

REACTIONS (4)
  - Haemoptysis [Recovered/Resolved]
  - Hypertension [Recovered/Resolved]
  - Oropharyngeal pain [Recovered/Resolved]
  - Hepatic function abnormal [Recovered/Resolved]

NARRATIVE: CASE EVENT DATE: 20231101
